FAERS Safety Report 6753105-4 (Version None)
Quarter: 2010Q2

REPORT INFORMATION
  Report Type: 
  Country: None (occurrence: None)
  Receive Date: 20100603
  Receipt Date: 20100524
  Transmission Date: 20101027
  Serious: Yes (Other)
  Sender: FDA-Public Use
  Company Number: PHHY2010CN34318

PATIENT
  Age: 87 Year
  Sex: Female

DRUGS (4)
  1. CARBAMAZEPINE [Suspect]
     Dosage: 200 MG, BID
     Route: 048
     Dates: start: 20010823
  2. CARBAMAZEPINE [Suspect]
     Dosage: 100 MG, QD
     Route: 048
  3. METHYLCOBALAMIN [Concomitant]
  4. NOVOLIN R [Concomitant]
     Dosage: 38 U, QD

REACTIONS (2)
  - DYSARTHRIA [None]
  - GLOSSODYNIA [None]
